FAERS Safety Report 22006849 (Version 1)
Quarter: 2023Q1

REPORT INFORMATION
  Report Type: Spontaneous
  Country: US (occurrence: None)
  Receive Date: 20230216
  Receipt Date: 20230216
  Transmission Date: 20230418
  Serious: Yes (Hospitalization)
  Sender: FDA-Public Use
  Company Number: None

PATIENT
  Age: 69 Year
  Sex: Female

DRUGS (1)
  1. OPSUMIT [Suspect]
     Active Substance: MACITENTAN
     Indication: Pulmonary arterial hypertension
     Dosage: 10MG 1 TIME A DAY ORAL?
     Route: 048
     Dates: start: 202301

REACTIONS (3)
  - Nasopharyngitis [None]
  - Pneumonia [None]
  - Heart rate increased [None]

NARRATIVE: CASE EVENT DATE: 20230214
